FAERS Safety Report 18169449 (Version 1)
Quarter: 2020Q3

REPORT INFORMATION
  Report Type: Spontaneous
  Country: CA (occurrence: CA)
  Receive Date: 20200819
  Receipt Date: 20200819
  Transmission Date: 20201103
  Serious: Yes (Other)
  Sender: FDA-Public Use
  Company Number: CA-TEVA-2020-CA-1815877

PATIENT
  Age: 68 Year
  Sex: Male

DRUGS (7)
  1. COSENTYX [Suspect]
     Active Substance: SECUKINUMAB
     Indication: PSORIASIS
     Route: 058
  2. OTEZLA [Concomitant]
     Active Substance: APREMILAST
     Route: 065
  3. DESOXIMETASONE. [Suspect]
     Active Substance: DESOXIMETASONE
     Indication: PSORIASIS
     Route: 065
  4. MYCOPHENOLATE MOFETIL. [Suspect]
     Active Substance: MYCOPHENOLATE MOFETIL
     Indication: PSORIASIS
     Route: 065
  5. ACITRETIN. [Concomitant]
     Active Substance: ACITRETIN
     Dosage: 100 MILLIGRAM DAILY;
     Route: 065
  6. METHOTREXATE. [Suspect]
     Active Substance: METHOTREXATE
     Indication: PRODUCT USED FOR UNKNOWN INDICATION
     Route: 065
  7. CICLOSPORIN [Suspect]
     Active Substance: CYCLOSPORINE
     Indication: PRODUCT USED FOR UNKNOWN INDICATION
     Route: 065

REACTIONS (4)
  - Psoriasis [Unknown]
  - Mobility decreased [Unknown]
  - Drug ineffective [Unknown]
  - Myasthenia gravis [Unknown]
